FAERS Safety Report 23109361 (Version 1)
Quarter: 2023Q4

REPORT INFORMATION
  Report Type: Spontaneous
  Country: US (occurrence: US)
  Receive Date: 20231026
  Receipt Date: 20231026
  Transmission Date: 20240110
  Serious: No
  Sender: FDA-Public Use
  Company Number: US-002147023-NVSC2023US229444

PATIENT

DRUGS (1)
  1. LEQVIO [Suspect]
     Active Substance: INCLISIRAN SODIUM
     Indication: Product used for unknown indication
     Dosage: 284 MG ( SCHEDULE OF LEQVIO WAS AT 1 MONTH, THEN AGAIN AT 3 MONTHS, AND AGAIN AT 6 MONTHS)
     Route: 065
     Dates: start: 20230321

REACTIONS (5)
  - Dyspnoea [Unknown]
  - Cough [Unknown]
  - Myalgia [Unknown]
  - Diarrhoea [Unknown]
  - Bronchitis [Unknown]
